FAERS Safety Report 11170785 (Version 1)
Quarter: 2015Q2

REPORT INFORMATION
  Report Type: Spontaneous
  Country: US (occurrence: None)
  Receive Date: 20150605
  Receipt Date: 20150605
  Transmission Date: 20150821
  Serious: Yes (Disabling)
  Sender: FDA-Public Use
  Company Number: None

PATIENT
  Age: 67 Year
  Sex: Female
  Weight: 94.35 kg

DRUGS (3)
  1. OXYCODON-ACETAMINOPHEN 7.5-325 AMNEAL PHARMAC [Suspect]
     Active Substance: ACETAMINOPHEN\OXYCODONE HYDROCHLORIDE
     Indication: BACK PAIN
     Dosage: 1 TABLET EVERY 4 HRS AS NEEDED
     Route: 048
     Dates: start: 20150511, end: 20150603
  2. VIT-D3 [Concomitant]
  3. MULTIVITAMIN [Concomitant]
     Active Substance: VITAMINS

REACTIONS (3)
  - Product substitution issue [None]
  - Product tampering [None]
  - Drug ineffective [None]

NARRATIVE: CASE EVENT DATE: 20150511
